FAERS Safety Report 22346978 (Version 1)
Quarter: 2023Q2

REPORT INFORMATION
  Report Type: Spontaneous
  Country: CA (occurrence: CA)
  Receive Date: 20230520
  Receipt Date: 20230520
  Transmission Date: 20230722
  Serious: Yes (Other)
  Sender: FDA-Public Use
  Company Number: None

PATIENT
  Age: 45 Year
  Sex: Male
  Weight: 83 kg

DRUGS (4)
  1. METHOTREXATE SODIUM [Suspect]
     Active Substance: METHOTREXATE SODIUM
     Indication: Colitis
  2. ENTOCORT ENEMA [Concomitant]
  3. PREDNISONE [Concomitant]
     Active Substance: PREDNISONE
     Dosage: EVERY 1 DAYS
  4. METHOTREXATE SODIUM [Suspect]
     Active Substance: METHOTREXATE SODIUM
     Indication: Colitis

REACTIONS (6)
  - Condition aggravated [Unknown]
  - Diarrhoea [Unknown]
  - Drug ineffective for unapproved indication [Unknown]
  - Haematochezia [Unknown]
  - Mucous stools [Unknown]
  - Proctalgia [Unknown]
